FAERS Safety Report 8232389-X (Version None)
Quarter: 2012Q1

REPORT INFORMATION
  Report Type: 
  Country: None (occurrence: None)
  Receive Date: 20120323
  Receipt Date: 20120320
  Transmission Date: 20120608
  Serious: Yes (Disabling)
  Sender: FDA-Public Use
  Company Number: AU-GLAXOSMITHKLINE-B0790317A

PATIENT
  Age: 43 Year
  Sex: Female

DRUGS (5)
  1. SEROQUEL [Concomitant]
  2. TOPAMAX [Concomitant]
  3. CYMBALTA [Concomitant]
  4. NEXIUM [Concomitant]
  5. LAMICTAL [Suspect]
     Indication: AFFECTIVE DISORDER
     Route: 065

REACTIONS (3)
  - MYALGIA [None]
  - ASTHENIA [None]
  - ABASIA [None]
